FAERS Safety Report 5142405-X (Version None)
Quarter: 2006Q4

REPORT INFORMATION
  Report Type: 
  Country: None (occurrence: None)
  Receive Date: 20061102
  Receipt Date: 20061024
  Transmission Date: 20070319
  Serious: Yes (Life-Threatening)
  Sender: FDA-Public Use
  Company Number: JP-ROCHE-469046

PATIENT
  Age: 74 Year
  Sex: Female

DRUGS (5)
  1. PEGASYS [Suspect]
     Route: 058
     Dates: start: 20050621, end: 20050909
  2. PEGASYS [Suspect]
     Route: 058
     Dates: start: 20050916, end: 20060127
  3. NORVASC [Concomitant]
     Route: 048
     Dates: start: 20050419, end: 20061023
  4. HALCION [Concomitant]
     Route: 048
     Dates: start: 20050719, end: 20050815
  5. BENZALIN [Concomitant]
     Route: 048
     Dates: start: 20050823, end: 20061023

REACTIONS (6)
  - ALANINE AMINOTRANSFERASE INCREASED [None]
  - ATRIOVENTRICULAR BLOCK [None]
  - MALAISE [None]
  - NEUTROPHIL COUNT DECREASED [None]
  - PLATELET COUNT DECREASED [None]
  - PLEURAL EFFUSION [None]
